FAERS Safety Report 11845371 (Version 2)
Quarter: 2015Q4

REPORT INFORMATION
  Report Type: Report from Study
  Country: US (occurrence: US)
  Receive Date: 20151217
  Receipt Date: 20151229
  Transmission Date: 20160305
  Serious: Yes (Life-Threatening, Hospitalization)
  Sender: FDA-Public Use
  Company Number: US-ACTELION-A-NJ2015-123234

PATIENT
  Age: 74 Year
  Sex: Male

DRUGS (6)
  1. GABAPENTIN. [Concomitant]
     Active Substance: GABAPENTIN
  2. MECHLORETHAMINE [Suspect]
     Active Substance: MECHLORETHAMINE
     Indication: MYCOSIS FUNGOIDES
     Dosage: UNK, QD
     Route: 061
     Dates: start: 20140513
  3. POTASSIUM [Concomitant]
     Active Substance: POTASSIUM
  4. AQUAPHOR [Concomitant]
     Active Substance: PETROLATUM
  5. MONTELUKAST [Concomitant]
     Active Substance: MONTELUKAST SODIUM
  6. AMPICILLIN [Concomitant]
     Active Substance: AMPICILLIN

REACTIONS (12)
  - Pyrexia [Recovered/Resolved]
  - Endocarditis bacterial [Recovered/Resolved]
  - Sepsis [Recovered/Resolved]
  - Hypotension [Recovered/Resolved]
  - Skin ulcer [Not Recovered/Not Resolved]
  - Diabetic foot infection [Unknown]
  - Urinary tract infection [Recovered/Resolved]
  - Staphylococcal infection [Recovered/Resolved]
  - Lethargy [Unknown]
  - Cellulitis [Not Recovered/Not Resolved]
  - Osteomyelitis [Not Recovered/Not Resolved]
  - Decubitus ulcer [Not Recovered/Not Resolved]

NARRATIVE: CASE EVENT DATE: 20150806
